FAERS Safety Report 19820424 (Version 1)
Quarter: 2021Q3

REPORT INFORMATION
  Report Type: Spontaneous
  Country: US (occurrence: US)
  Receive Date: 20210910
  Receipt Date: 20210910
  Transmission Date: 20211014
  Serious: No
  Sender: FDA-Public Use
  Company Number: None

PATIENT
  Sex: Female

DRUGS (1)
  1. HYDROCODONE?ACETAMINOPHEN 10MG?325MG [Suspect]
     Active Substance: ACETAMINOPHEN\HYDROCODONE

REACTIONS (3)
  - Product substitution issue [None]
  - Inadequate analgesia [None]
  - Malaise [None]

NARRATIVE: CASE EVENT DATE: 20210909
